FAERS Safety Report 9123757 (Version 2)
Quarter: 2013Q1

REPORT INFORMATION
  Report Type: Spontaneous
  Country: US (occurrence: US)
  Receive Date: 20130116
  Receipt Date: 20130318
  Transmission Date: 20140127
  Serious: Yes (Hospitalization)
  Sender: FDA-Public Use
  Company Number: US-BAYER-2013-005185

PATIENT
  Age: 31 Year
  Sex: Female
  Weight: 122.45 kg

DRUGS (9)
  1. YAZ [Suspect]
     Dosage: UNK
     Dates: start: 2005, end: 2010
  2. YASMIN [Suspect]
     Dosage: UNK
     Dates: start: 2005, end: 2010
  3. ALLEGRA-D 24 HOUR [Concomitant]
     Dosage: 1 TAB OD
     Route: 048
  4. PROZAC [Concomitant]
     Dosage: 20 MG, UNK
     Route: 048
  5. ALBUTEROL [Concomitant]
     Dosage: 2 PUFF(S), UNK
     Route: 045
  6. ADVAIR [Concomitant]
     Route: 048
  7. MOTRIN [Concomitant]
     Route: 048
  8. VICODIN [Concomitant]
     Dosage: UNK UNK, PRN
     Route: 048
  9. TRAZODONE [Concomitant]
     Dosage: UNK UNK, PRN
     Route: 048

REACTIONS (9)
  - Deep vein thrombosis [None]
  - Pain [None]
  - Pain in extremity [None]
  - Local swelling [None]
  - Injury [None]
  - General physical health deterioration [None]
  - Anxiety [None]
  - Emotional distress [None]
  - Pain [None]
